FAERS Safety Report 17740574 (Version 2)
Quarter: 2020Q2

REPORT INFORMATION
  Report Type: Spontaneous
  Country: US (occurrence: US)
  Receive Date: 20200504
  Receipt Date: 20200602
  Transmission Date: 20200714
  Serious: No
  Sender: FDA-Public Use
  Company Number: US-JNJFOC-20200500534

PATIENT
  Age: 27 Year
  Sex: Female
  Weight: 102.15 kg

DRUGS (3)
  1. REMICADE [Suspect]
     Active Substance: INFLIXIMAB
     Dosage: 400 TO 500 MG (4 TO 5 VIALS) EVERY 6 WEEKS
     Route: 042
     Dates: start: 2010
  2. PRILOSEC [Concomitant]
     Active Substance: OMEPRAZOLE MAGNESIUM
     Indication: PRODUCT USED FOR UNKNOWN INDICATION
     Route: 065
  3. REMICADE [Suspect]
     Active Substance: INFLIXIMAB
     Indication: CROHN^S DISEASE
     Dosage: 400 TO 500 MG (4 TO 5 VIALS) EVERY 6 WEEKS
     Route: 042
     Dates: start: 200901

REACTIONS (3)
  - Product dose omission [Unknown]
  - Off label use [Unknown]
  - Wrong technique in product usage process [Unknown]

NARRATIVE: CASE EVENT DATE: 200901
